FAERS Safety Report 22918740 (Version 3)
Quarter: 2024Q2

REPORT INFORMATION
  Report Type: Report from Study
  Country: CA (occurrence: CA)
  Receive Date: 20230907
  Receipt Date: 20240415
  Transmission Date: 20240716
  Serious: Yes (Hospitalization, Other)
  Sender: FDA-Public Use
  Company Number: CA-ABBVIE-5396241

PATIENT
  Sex: Male

DRUGS (3)
  1. SKYRIZI [Suspect]
     Active Substance: RISANKIZUMAB-RZAA
     Indication: Crohn^s disease
     Dosage: AT WEEK 12
     Route: 058
     Dates: start: 20230616
  2. SKYRIZI [Suspect]
     Active Substance: RISANKIZUMAB-RZAA
     Route: 058
  3. PREDNISONE [Concomitant]
     Active Substance: PREDNISONE
     Indication: Product used for unknown indication
     Dosage: INTERMITTENTLY

REACTIONS (14)
  - Obstructive pancreatitis [Unknown]
  - Diarrhoea [Unknown]
  - Cholelithiasis [Not Recovered/Not Resolved]
  - Bile duct stone [Unknown]
  - Unevaluable event [Unknown]
  - Haematochezia [Unknown]
  - Gait inability [Unknown]
  - Gallbladder disorder [Not Recovered/Not Resolved]
  - Fluid retention [Not Recovered/Not Resolved]
  - Abdominal pain [Not Recovered/Not Resolved]
  - Loss of personal independence in daily activities [Unknown]
  - Rectal haemorrhage [Not Recovered/Not Resolved]
  - Coronary artery bypass [Unknown]
  - Pericardial effusion [Not Recovered/Not Resolved]
